FAERS Safety Report 8673887 (Version 9)
Quarter: 2013Q3

REPORT INFORMATION
  Report Type: Spontaneous
  Country: US (occurrence: US)
  Receive Date: 20120719
  Receipt Date: 20130827
  Transmission Date: 20140515
  Serious: Yes (Hospitalization, Disabling, Other)
  Sender: FDA-Public Use
  Company Number: US-009507513-1207USA004468

PATIENT
  Sex: Male
  Weight: 83.9 kg

DRUGS (8)
  1. FOSAMAX [Suspect]
     Indication: OSTEOPOROSIS
     Dosage: 10 MG, UNK
     Route: 048
     Dates: start: 20000216, end: 20010419
  2. FOSAMAX [Suspect]
     Dosage: 70 MG, QW
     Route: 048
     Dates: start: 20010605, end: 20070107
  3. FOSAMAX PLUS D [Suspect]
     Indication: OSTEOPOROSIS
     Dosage: 70 MG, UNK
     Route: 048
     Dates: start: 20070408, end: 20080310
  4. ALENDRONATE SODIUM [Suspect]
     Indication: OSTEOPOROSIS
     Dosage: 70 MG, QW
     Route: 048
     Dates: start: 20081205, end: 200903
  5. CALCIUM (UNSPECIFIED) [Concomitant]
     Dosage: UNK MG, QD
     Dates: start: 1996
  6. VITAMIN D (UNSPECIFIED) [Concomitant]
     Dosage: UNK
     Dates: start: 1996
  7. PREDNISONE [Concomitant]
     Indication: HYPERSENSITIVITY
     Dosage: 30-50 MG DAILY
     Route: 048
     Dates: start: 1978
  8. PREDNISONE [Concomitant]
     Indication: ECZEMA

REACTIONS (76)
  - Intramedullary rod insertion [Recovered/Resolved]
  - Fall [Unknown]
  - Knee arthroplasty [Unknown]
  - Osteoporosis [Not Recovered/Not Resolved]
  - Stress fracture [Not Recovered/Not Resolved]
  - Respiratory failure [Unknown]
  - Knee arthroplasty [Unknown]
  - Knee arthroplasty [Unknown]
  - Rotator cuff repair [Unknown]
  - Femur fracture [Not Recovered/Not Resolved]
  - Pneumonia [Unknown]
  - Convulsion [Unknown]
  - Spinal fusion surgery [Unknown]
  - Low turnover osteopathy [Not Recovered/Not Resolved]
  - Osteonecrosis [Unknown]
  - Spinal decompression [Unknown]
  - Spinal operation [Unknown]
  - Open reduction of fracture [Unknown]
  - Fall [Unknown]
  - Femur fracture [Unknown]
  - Femur fracture [Recovered/Resolved]
  - Coronary artery disease [Unknown]
  - Coronary arterial stent insertion [Unknown]
  - Cellulitis [Unknown]
  - Staphylococcal infection [Unknown]
  - Tooth extraction [Unknown]
  - Depression [Unknown]
  - Nephrolithiasis [Unknown]
  - Addison^s disease [Unknown]
  - Hypothyroidism [Unknown]
  - Hypercholesterolaemia [Unknown]
  - Hypertension [Unknown]
  - Fluid retention [Unknown]
  - Gout [Unknown]
  - Soft tissue disorder [Unknown]
  - Injury [Unknown]
  - Osteoarthritis [Not Recovered/Not Resolved]
  - Chronic obstructive pulmonary disease [Not Recovered/Not Resolved]
  - Neuralgia [Unknown]
  - Cervical spinal stenosis [Unknown]
  - Bone neoplasm [Unknown]
  - Wound drainage [Unknown]
  - Lumbar spinal stenosis [Unknown]
  - Cellulitis [Unknown]
  - Chondrocalcinosis [Unknown]
  - Osteopenia [Unknown]
  - Anaemia [Unknown]
  - Activities of daily living impaired [Unknown]
  - Rotator cuff syndrome [Unknown]
  - Laceration [Unknown]
  - Osteoarthritis [Unknown]
  - Nasopharyngitis [Unknown]
  - Osteoarthritis [Unknown]
  - Bronchitis [Unknown]
  - Pleural effusion [Unknown]
  - Pain [Not Recovered/Not Resolved]
  - Haemorrhagic anaemia [Unknown]
  - Leukocytosis [Unknown]
  - Skin atrophy [Unknown]
  - Nephrolithiasis [Unknown]
  - Staphylococcal infection [Unknown]
  - Haematoma [Unknown]
  - Lithotripsy [Unknown]
  - Mobility decreased [Unknown]
  - Neoplasm prostate [Unknown]
  - Joint crepitation [Unknown]
  - Exostosis [Unknown]
  - Intervertebral disc degeneration [Unknown]
  - Scoliosis [Unknown]
  - Asthma [Not Recovered/Not Resolved]
  - Oedema peripheral [Unknown]
  - Gastrooesophageal reflux disease [Unknown]
  - Arthralgia [Not Recovered/Not Resolved]
  - Erythema [Unknown]
  - Constipation [Unknown]
  - Musculoskeletal pain [Unknown]
